FAERS Safety Report 8123779-4 (Version None)
Quarter: 2012Q1

REPORT INFORMATION
  Report Type: 
  Country: None (occurrence: None)
  Receive Date: 20120208
  Receipt Date: 20120131
  Transmission Date: 20120608
  Serious: Yes (Other)
  Sender: FDA-Public Use
  Company Number: US-ASTRAZENECA-2009UW14895

PATIENT
  Age: 55 Year
  Sex: Male

DRUGS (10)
  1. NEXIUM [Suspect]
     Indication: GASTRIC ULCER
     Dosage: 80 MG, 1 CAPSULE, Q6HRS
     Route: 048
     Dates: start: 20040101, end: 20090329
  2. DRONABINOL [Interacting]
     Indication: NAUSEA
     Route: 048
     Dates: start: 20090512
  3. DRONABINOL [Interacting]
     Indication: APPETITE DISORDER
     Route: 048
     Dates: start: 20090512
  4. DRONABINOL [Interacting]
     Indication: FIBROMYALGIA
     Route: 048
     Dates: start: 20090512
  5. DRONABINOL [Interacting]
     Route: 048
     Dates: start: 20090326, end: 20090508
  6. DRONABINOL [Interacting]
     Route: 048
     Dates: start: 20090326, end: 20090508
  7. DRONABINOL [Interacting]
     Route: 048
     Dates: start: 20090326, end: 20090508
  8. DRONABINOL [Interacting]
     Route: 048
     Dates: start: 20090326, end: 20090508
  9. DRONABINOL [Interacting]
     Route: 048
     Dates: start: 20090326, end: 20090508
  10. DRONABINOL [Interacting]
     Route: 048
     Dates: start: 20090326, end: 20090508

REACTIONS (4)
  - DRUG INEFFECTIVE [None]
  - DRUG INTERACTION [None]
  - COLON CANCER [None]
  - MEDICATION RESIDUE [None]
